FAERS Safety Report 17355413 (Version 1)
Quarter: 2020Q1

REPORT INFORMATION
  Report Type: Spontaneous
  Country: TR (occurrence: TR)
  Receive Date: 20200131
  Receipt Date: 20200131
  Transmission Date: 20200409
  Serious: Yes (Death, Hospitalization, Other)
  Sender: FDA-Public Use
  Company Number: TR-SILVERGATE PHARMACEUTICALS, INC.-2020SIL00005

PATIENT
  Age: 72 Year
  Sex: Male

DRUGS (2)
  1. METHOTREXATE. [Suspect]
     Active Substance: METHOTREXATE
     Dosage: 15 MG, 1X/DAY (FOR 7-10 DAYS)
     Route: 030
  2. METHOTREXATE. [Suspect]
     Active Substance: METHOTREXATE
     Indication: ARTHRALGIA
     Dosage: INTERMITTENTLY
     Route: 030

REACTIONS (8)
  - Disseminated intravascular coagulation [Fatal]
  - Rash maculo-papular [Not Recovered/Not Resolved]
  - Thrombocytopenia [Unknown]
  - Overdose [Fatal]
  - Neutropenic colitis [Fatal]
  - Mucosal inflammation [Not Recovered/Not Resolved]
  - Sepsis [Fatal]
  - Dehydration [Not Recovered/Not Resolved]
